FAERS Safety Report 6801128-9 (Version None)
Quarter: 2010Q2

REPORT INFORMATION
  Report Type: 
  Country: None (occurrence: None)
  Receive Date: 20100629
  Receipt Date: 20100617
  Transmission Date: 20101027
  Serious: Yes (Other)
  Sender: FDA-Public Use
  Company Number: BR-PFIZER INC-2010061998

PATIENT
  Age: 27 Year
  Sex: Female
  Weight: 55.782 kg

DRUGS (2)
  1. DOSTINEX [Suspect]
     Indication: PROLACTINOMA
     Dosage: 0.5 MG, WEEKLY
     Route: 048
     Dates: start: 20010201, end: 20100517
  2. PARLODEL [Suspect]
     Dosage: UNK
     Route: 048
     Dates: end: 20030101

REACTIONS (3)
  - HEPATIC ENZYME INCREASED [None]
  - HEPATIC FIBROSIS [None]
  - LIVER DISORDER [None]
